FAERS Safety Report 7634673-7 (Version None)
Quarter: 2011Q3

REPORT INFORMATION
  Report Type: 
  Country: None (occurrence: None)
  Receive Date: 20110725
  Receipt Date: 20110222
  Transmission Date: 20111222
  Serious: No
  Sender: FDA-Public Use
  Company Number: US-BAYER-2011-052178

PATIENT
  Age: 41 Year
  Sex: Female
  Weight: 58.957 kg

DRUGS (1)
  1. RID MOUSSE [Suspect]
     Indication: LICE INFESTATION
     Dosage: 1 DF, UNK
     Route: 061
     Dates: start: 20110221, end: 20110221

REACTIONS (1)
  - PRURITUS [None]
